FAERS Safety Report 10072511 (Version 1)
Quarter: 2014Q2

REPORT INFORMATION
  Report Type: Spontaneous
  Country: DK (occurrence: DE)
  Receive Date: 20140411
  Receipt Date: 20140411
  Transmission Date: 20141212
  Serious: Yes (Congenital Anomaly)
  Sender: FDA-Public Use
  Company Number: DE-FRI-1000066403

PATIENT
  Age: 1 Day
  Sex: Male
  Weight: 2 kg

DRUGS (1)
  1. CITALOPRAM [Suspect]
     Route: 064
     Dates: start: 20111114, end: 20120626

REACTIONS (11)
  - Neonatal respiratory distress syndrome [Recovered/Resolved]
  - Periventricular leukomalacia [Not Recovered/Not Resolved]
  - Factor V Leiden mutation [Not Recovered/Not Resolved]
  - Methylenetetrahydrofolate reductase deficiency [Unknown]
  - Nervous system disorder [Unknown]
  - Atrial septal defect [Unknown]
  - Cryptorchism [Unknown]
  - Premature baby [Recovered/Resolved]
  - Feeding disorder [Recovered/Resolved]
  - Low birth weight baby [Unknown]
  - Foetal exposure during pregnancy [Recovered/Resolved]
